FAERS Safety Report 4627495-2 (Version None)
Quarter: 2005Q2

REPORT INFORMATION
  Report Type: 
  Country: None (occurrence: None)
  Receive Date: 20050405
  Receipt Date: 20050321
  Transmission Date: 20051028
  Serious: Yes (Death, Other)
  Sender: FDA-Public Use
  Company Number: USA-2004-0018113

PATIENT
  Age: 17 Year
  Sex: Male
  Weight: 63.9 kg

DRUGS (7)
  1. OXYCONTIN [Suspect]
  2. ALCOHOL (ETHANOL) [Suspect]
  3. ALPRAZOLAM [Suspect]
  4. OXYMORPHONE HYDROCHLORIDE [Suspect]
  5. LIDOCAINE [Suspect]
  6. COCAINE (COCAINE) [Suspect]
  7. CANNABINOIDS [Suspect]

REACTIONS (8)
  - ACCIDENTAL DEATH [None]
  - ANOXIC ENCEPHALOPATHY [None]
  - CARDIAC ARREST [None]
  - FOREIGN BODY ASPIRATION [None]
  - GENERAL PHYSICAL HEALTH DETERIORATION [None]
  - MULTIPLE DRUG OVERDOSE ACCIDENTAL [None]
  - POLYSUBSTANCE ABUSE [None]
  - RESPIRATORY ARREST [None]
